FAERS Safety Report 4682264-2 (Version None)
Quarter: 2005Q2

REPORT INFORMATION
  Report Type: 
  Country: None (occurrence: None)
  Receive Date: 20050603
  Receipt Date: 20050603
  Transmission Date: 20051028
  Serious: Yes (Other)
  Sender: FDA-Public Use
  Company Number: None

PATIENT
  Age: 29 Year
  Sex: Female

DRUGS (1)
  1. PPD [Suspect]

REACTIONS (3)
  - OEDEMA PERIPHERAL [None]
  - SIMILAR REACTION ON PREVIOUS EXPOSURE TO DRUG [None]
  - THROAT TIGHTNESS [None]
